FAERS Safety Report 4928421-9 (Version None)
Quarter: 2006Q1

REPORT INFORMATION
  Report Type: 
  Country: None (occurrence: None)
  Receive Date: 20060228
  Receipt Date: 20050929
  Transmission Date: 20060701
  Serious: Yes (Hospitalization, Disabling)
  Sender: FDA-Public Use
  Company Number: US-MERCK-0510USA00280

PATIENT
  Age: 62 Year
  Sex: Female
  Weight: 70 kg

DRUGS (8)
  1. VIOXX [Suspect]
     Indication: BACK PAIN
     Route: 048
     Dates: start: 20020206, end: 20040210
  2. DOXYCYCLINE [Concomitant]
     Route: 065
  3. PSEUDOVENT [Concomitant]
     Route: 065
  4. ACTONEL [Concomitant]
     Route: 065
  5. POLYMYXIN [Concomitant]
     Route: 065
  6. [THERAPY UNSPECIFIED] [Concomitant]
     Route: 065
  7. CLARITIN [Concomitant]
     Route: 065
  8. MIACALCIN [Concomitant]
     Route: 065

REACTIONS (16)
  - ABDOMINAL PAIN [None]
  - ARTHRITIS [None]
  - BLOOD CHOLESTEROL INCREASED [None]
  - BLOOD GLUCOSE INCREASED [None]
  - BLOOD PRESSURE INCREASED [None]
  - BURSITIS [None]
  - CEREBROVASCULAR ACCIDENT [None]
  - DIZZINESS [None]
  - INNER EAR DISORDER [None]
  - NAUSEA [None]
  - PLANTAR FASCIITIS [None]
  - PTERYGIUM [None]
  - REFRACTION DISORDER [None]
  - TALIPES [None]
  - THYROID NEOPLASM [None]
  - VERTIGO [None]
